FAERS Safety Report 5352859-1 (Version None)
Quarter: 2007Q2

REPORT INFORMATION
  Report Type: 
  Country: None (occurrence: None)
  Receive Date: 20070518
  Receipt Date: 20070403
  Transmission Date: 20071010
  Serious: No
  Sender: FDA-Public Use
  Company Number: TPA2007A00735

PATIENT
  Age: 87 Year
  Sex: Male
  Weight: 68.0396 kg

DRUGS (3)
  1. ROZEREM [Suspect]
     Indication: INITIAL INSOMNIA
     Dosage: 8 MG, HS , PER ORAL
     Route: 048
     Dates: start: 20070301, end: 20070301
  2. SINEMET [Concomitant]
  3. CAPOTEN [Concomitant]

REACTIONS (1)
  - DRUG INEFFECTIVE [None]
